FAERS Safety Report 9973665 (Version 1)
Quarter: 2014Q1

REPORT INFORMATION
  Report Type: Spontaneous
  Country: US (occurrence: US)
  Receive Date: 20140306
  Receipt Date: 20140306
  Transmission Date: 20141002
  Serious: Yes (Other)
  Sender: FDA-Public Use
  Company Number: US-BAYER-2014-031340

PATIENT
  Age: 27 Year
  Sex: Female

DRUGS (1)
  1. MIRENA [Suspect]
     Dosage: UNK
     Route: 015
     Dates: start: 201309, end: 20140214

REACTIONS (21)
  - Chemical poisoning [Recovering/Resolving]
  - Sinusitis [Recovering/Resolving]
  - Uterine infection [Recovering/Resolving]
  - Uterine inflammation [Recovering/Resolving]
  - Uterine cervical laceration [Recovering/Resolving]
  - Complication of device insertion [Recovering/Resolving]
  - Uterine enlargement [Recovering/Resolving]
  - Rash erythematous [Recovering/Resolving]
  - Photosensitivity reaction [Recovering/Resolving]
  - Coordination abnormal [Recovering/Resolving]
  - Contusion [Recovering/Resolving]
  - Weight decreased [Recovering/Resolving]
  - Asthenia [Recovering/Resolving]
  - Memory impairment [Recovering/Resolving]
  - Myalgia [Recovering/Resolving]
  - Feeling abnormal [Recovering/Resolving]
  - Dizziness [Recovering/Resolving]
  - Ocular hyperaemia [Recovering/Resolving]
  - Pallor [Recovering/Resolving]
  - Vasodilatation [Recovering/Resolving]
  - Alopecia [Recovering/Resolving]
